FAERS Safety Report 11578637 (Version 1)
Quarter: 2015Q3

REPORT INFORMATION
  Report Type: Spontaneous
  Country: US (occurrence: US)
  Receive Date: 20150916
  Receipt Date: 20150916
  Transmission Date: 20151125
  Serious: Yes (Other)
  Sender: FDA-Public Use
  Company Number: US-ELI_LILLY_AND_COMPANY-US201307003377

PATIENT
  Age: 60 Year
  Sex: Female
  Weight: 95.24 kg

DRUGS (2)
  1. HUMALOG [Suspect]
     Active Substance: INSULIN LISPRO
     Dosage: UNK
     Route: 058
  2. HUMALOG [Suspect]
     Active Substance: INSULIN LISPRO
     Indication: TYPE 1 DIABETES MELLITUS
     Route: 058

REACTIONS (9)
  - Fall [Recovered/Resolved]
  - Blood glucose decreased [Recovered/Resolved]
  - Pain [Unknown]
  - Incorrect dose administered [Unknown]
  - Tendon injury [Unknown]
  - Visual acuity reduced [Unknown]
  - Blood glucose decreased [Not Recovered/Not Resolved]
  - Diabetic foot [Recovered/Resolved]
  - Hypoglycaemic unconsciousness [Recovered/Resolved]

NARRATIVE: CASE EVENT DATE: 20120705
